FAERS Safety Report 10919451 (Version 5)
Quarter: 2015Q2

REPORT INFORMATION
  Report Type: Report from Study
  Country: ES (occurrence: ES)
  Receive Date: 20150316
  Receipt Date: 20150630
  Transmission Date: 20150821
  Serious: Yes (Hospitalization, Other)
  Sender: FDA-Public Use
  Company Number: ES-GILEAD-2015-0141018

PATIENT
  Age: 76 Year
  Sex: Female

DRUGS (19)
  1. HIBOR [Concomitant]
     Active Substance: BEMIPARIN SODIUM
  2. LORAZEPAM. [Concomitant]
     Active Substance: LORAZEPAM
  3. MIRTAZAPINE. [Concomitant]
     Active Substance: MIRTAZAPINE
  4. IDELALISIB [Suspect]
     Active Substance: IDELALISIB
     Indication: CHRONIC LYMPHOCYTIC LEUKAEMIA
     Dosage: 150 MG, BID
     Route: 048
     Dates: end: 20150221
  5. RITUXIMAB [Concomitant]
     Active Substance: RITUXIMAB
     Indication: CHRONIC LYMPHOCYTIC LEUKAEMIA
     Dosage: UNK
     Dates: end: 20150221
  6. METFORMIN [Concomitant]
     Active Substance: METFORMIN HYDROCHLORIDE
  7. LEVOTHYROXINE [Concomitant]
     Active Substance: LEVOTHYROXINE
  8. VORICONAZOLE. [Concomitant]
     Active Substance: VORICONAZOLE
  9. ACTRAPID [Concomitant]
     Active Substance: INSULIN HUMAN
  10. BISOPROLOL [Concomitant]
     Active Substance: BISOPROLOL
  11. RANITIDINE [Concomitant]
     Active Substance: RANITIDINE\RANITIDINE HYDROCHLORIDE
  12. PRIMPERAN [Concomitant]
     Active Substance: METOCLOPRAMIDE HYDROCHLORIDE
  13. IDELALISIB [Suspect]
     Active Substance: IDELALISIB
     Dosage: UNK
     Route: 045
     Dates: start: 20150303
  14. PARACETAMOL [Concomitant]
     Active Substance: ACETAMINOPHEN
  15. FUROSEMIDE. [Concomitant]
     Active Substance: FUROSEMIDE
  16. NOLOTIL                            /00473101/ [Concomitant]
     Active Substance: METAMIZOLE
  17. RITUXIMAB [Concomitant]
     Active Substance: RITUXIMAB
     Dosage: UNK
  18. MOVICOL                            /08437601/ [Concomitant]
  19. IBUPROFEN. [Concomitant]
     Active Substance: IBUPROFEN

REACTIONS (7)
  - Bronchopulmonary aspergillosis [Unknown]
  - Pneumonia influenzal [Recovered/Resolved]
  - Pancytopenia [Recovering/Resolving]
  - Pneumonia bacterial [Unknown]
  - Bone marrow infiltration [Unknown]
  - Atrial fibrillation [Recovered/Resolved]
  - Wrong technique in drug usage process [Unknown]

NARRATIVE: CASE EVENT DATE: 20150223
